FAERS Safety Report 15340598 (Version 2)
Quarter: 2018Q3

REPORT INFORMATION
  Report Type: Report from Study
  Country: CA (occurrence: CA)
  Receive Date: 20180831
  Receipt Date: 20180921
  Transmission Date: 20181010
  Serious: Yes (Other)
  Sender: FDA-Public Use
  Company Number: CA-ALEXION PHARMACEUTICALS INC.-A201810947

PATIENT
  Age: 9 Year
  Sex: Female
  Weight: 38 kg

DRUGS (1)
  1. KANUMA [Suspect]
     Active Substance: SEBELIPASE ALFA
     Indication: LYSOSOMAL ACID LIPASE DEFICIENCY
     Dosage: 40 MG, Q2W
     Route: 042
     Dates: start: 20161121

REACTIONS (12)
  - International normalised ratio increased [Unknown]
  - Lymphocyte count decreased [Unknown]
  - Gilbert^s syndrome [Unknown]
  - Liver disorder [Unknown]
  - Granulocyte count increased [Unknown]
  - Neutrophil count decreased [Unknown]
  - Blood triglycerides increased [Not Recovered/Not Resolved]
  - Blood cholesterol increased [Not Recovered/Not Resolved]
  - White blood cell count decreased [Unknown]
  - High density lipoprotein decreased [Not Recovered/Not Resolved]
  - Hepatic steato-fibrosis [Unknown]
  - Haemolysis [Unknown]

NARRATIVE: CASE EVENT DATE: 20161121
